FAERS Safety Report 9560078 (Version 3)
Quarter: 2013Q4

REPORT INFORMATION
  Report Type: Spontaneous
  Country: US (occurrence: US)
  Receive Date: 20130927
  Receipt Date: 20131112
  Transmission Date: 20140711
  Serious: No
  Sender: FDA-Public Use
  Company Number: US-PFIZER INC-2013275410

PATIENT
  Age: 54 Year
  Sex: Female

DRUGS (5)
  1. LIPITOR [Suspect]
     Dosage: UNK
     Dates: start: 20120725
  2. LANTUS [Suspect]
     Dosage: UNK
  3. LEVEMIR [Concomitant]
     Dosage: UNK
     Dates: start: 20120811
  4. GLYBURIDE SR [Concomitant]
     Dosage: 5 MG, 2X/DAY
  5. VICTOZA [Concomitant]
     Dosage: 1.8 QD

REACTIONS (2)
  - Drug hypersensitivity [Recovered/Resolved]
  - Swelling [Recovered/Resolved]
